FAERS Safety Report 13401979 (Version 1)
Quarter: 2017Q2

REPORT INFORMATION
  Report Type: Spontaneous
  Country: IL (occurrence: IL)
  Receive Date: 20170404
  Receipt Date: 20170404
  Transmission Date: 20170830
  Serious: Yes (Death, Other)
  Sender: FDA-Public Use
  Company Number: IL-TEVA-736121ACC

PATIENT
  Age: 61 Year
  Sex: Male

DRUGS (4)
  1. OLANZAPINE TEVA 10 MG [Suspect]
     Active Substance: OLANZAPINE
     Route: 048
  2. SIMOVIL [Concomitant]
  3. LAMOTRIGINE. [Concomitant]
     Active Substance: LAMOTRIGINE
  4. TEGRETOL [Concomitant]
     Active Substance: CARBAMAZEPINE

REACTIONS (3)
  - Infection [Unknown]
  - Blood glucose increased [Fatal]
  - Septic shock [Unknown]
